FAERS Safety Report 6711138-8 (Version None)
Quarter: 2010Q2

REPORT INFORMATION
  Report Type: 
  Country: None (occurrence: None)
  Receive Date: 20100505
  Receipt Date: 20100423
  Transmission Date: 20101027
  Serious: Yes (Hospitalization)
  Sender: FDA-Public Use
  Company Number: FR-KINGPHARMUSA00001-K201000489

PATIENT
  Age: 72 Year
  Sex: Male

DRUGS (6)
  1. ALTACE [Suspect]
     Indication: PULMONARY OEDEMA
     Dosage: 5 MG, QD
     Route: 048
     Dates: start: 20090101, end: 20090127
  2. LASIX [Suspect]
     Indication: PULMONARY OEDEMA
     Dosage: 20 MG, QD
     Route: 048
     Dates: start: 20090101, end: 20090127
  3. PREVISCAN [Concomitant]
     Dosage: UNK
     Dates: start: 20090101
  4. TAHOR [Concomitant]
     Dosage: 80 MG, QD
  5. DIFFU K [Concomitant]
     Dosage: 600 MG, QD
  6. ORAL ANTIDIABETICS [Concomitant]
     Dosage: UNK
     Route: 048
     Dates: start: 19990101, end: 20090101

REACTIONS (8)
  - ANURIA [None]
  - BLOOD CREATININE INCREASED [None]
  - DEHYDRATION [None]
  - DIARRHOEA [None]
  - HYPERKALAEMIA [None]
  - RENAL FAILURE ACUTE [None]
  - RENAL TUBULAR NECROSIS [None]
  - VOMITING [None]
